FAERS Safety Report 18201319 (Version 2)
Quarter: 2020Q3

REPORT INFORMATION
  Report Type: Spontaneous
  Country: AU (occurrence: AU)
  Receive Date: 20200827
  Receipt Date: 20200827
  Transmission Date: 20201103
  Serious: Yes (Other)
  Sender: FDA-Public Use
  Company Number: AU-KAMADA LIMITED-2020AU003028

PATIENT

DRUGS (3)
  1. HUMAN RABIES IMMUNE GLOBULIN (BRAND NAME NOT DISCLOSED TO ME) [Suspect]
     Active Substance: HUMAN RABIES VIRUS IMMUNE GLOBULIN
     Indication: PRODUCT USED FOR UNKNOWN INDICATION
     Dosage: 1 DF (DOSE FORM)
     Route: 065
     Dates: start: 20181126
  2. RABIPUR [Suspect]
     Active Substance: RABIES VIRUS STRAIN FLURY LEP ANTIGEN (PROPIOLACTONE INACTIVATED)
     Indication: PRODUCT USED FOR UNKNOWN INDICATION
     Dosage: 1 DF (DOSE FORM)
     Route: 065
     Dates: start: 20181126
  3. ADT BOOSTER [Concomitant]
     Dosage: 1 DF (DOSE FORM)
     Route: 065
     Dates: start: 20181126

REACTIONS (7)
  - Diarrhoea [Not Recovered/Not Resolved]
  - Photophobia [Not Recovered/Not Resolved]
  - Influenza like illness [Not Recovered/Not Resolved]
  - Hypoaesthesia [Not Recovered/Not Resolved]
  - Mood swings [Not Recovered/Not Resolved]
  - Headache [Not Recovered/Not Resolved]
  - Paraesthesia [Not Recovered/Not Resolved]

NARRATIVE: CASE EVENT DATE: 20181127
